FAERS Safety Report 5846832-4 (Version None)
Quarter: 2008Q3

REPORT INFORMATION
  Report Type: 
  Country: None (occurrence: None)
  Receive Date: 20080815
  Receipt Date: 20080813
  Transmission Date: 20090109
  Serious: Yes (Hospitalization)
  Sender: FDA-Public Use
  Company Number: FR-RB-003219-08

PATIENT
  Age: 26 Year
  Sex: Male

DRUGS (2)
  1. SUBUTEX [Suspect]
     Dosage: 1 TO 2 INFUSIONS DAILY
     Route: 013
     Dates: start: 20000101
  2. VALIUM [Concomitant]
     Indication: DRUG USE FOR UNKNOWN INDICATION
     Dosage: DOSING INFORMATION UNKNOWN

REACTIONS (4)
  - ARTERIAL THROMBOSIS LIMB [None]
  - INCORRECT ROUTE OF DRUG ADMINISTRATION [None]
  - SUBSTANCE ABUSE [None]
  - VENOUS THROMBOSIS LIMB [None]
